FAERS Safety Report 8416282-5 (Version None)
Quarter: 2012Q2

REPORT INFORMATION
  Report Type: 
  Country: None (occurrence: None)
  Receive Date: 20120606
  Receipt Date: 20120524
  Transmission Date: 20120825
  Serious: Yes (Hospitalization)
  Sender: FDA-Public Use
  Company Number: JP-ELI_LILLY_AND_COMPANY-JP201204001880

PATIENT
  Sex: Male
  Weight: 80 kg

DRUGS (3)
  1. CYMBALTA [Suspect]
     Indication: DEPRESSION
     Dosage: 20 MG, QD
     Route: 048
     Dates: start: 20101202, end: 20101215
  2. CYMBALTA [Suspect]
     Dosage: 30 MG, QD
     Route: 048
     Dates: start: 20101216, end: 20101228
  3. AMOXAPINE [Concomitant]
     Indication: DEPRESSION
     Dosage: 25 MG, TID
     Route: 048
     Dates: start: 20100812, end: 20110105

REACTIONS (1)
  - DELIRIUM [None]
